FAERS Safety Report 23014536 (Version 2)
Quarter: 2023Q4

REPORT INFORMATION
  Report Type: Report from Study
  Country: US (occurrence: None)
  Receive Date: 20231002
  Receipt Date: 20231011
  Transmission Date: 20240109
  Serious: Yes (Disabling)
  Sender: FDA-Public Use
  Company Number: US-ROCHE-3428108

PATIENT
  Age: 98 Year
  Sex: Female

DRUGS (8)
  1. FARICIMAB [Suspect]
     Active Substance: FARICIMAB
     Indication: Neovascular age-related macular degeneration
     Dosage: ON 03/MAY/2023 AT 1:59 PM STUDY DRUG (6MG) WAS GIVEN PRIOR AE/SAE
     Route: 050
     Dates: start: 20210729
  2. LATANOPROST [Concomitant]
     Active Substance: LATANOPROST
     Indication: Glaucoma
     Route: 047
     Dates: start: 2014
  3. ALPHAGAN P [Concomitant]
     Active Substance: BRIMONIDINE TARTRATE
     Indication: Glaucoma
     Route: 047
     Dates: start: 2014
  4. MINERALS\VITAMINS [Concomitant]
     Active Substance: MINERALS\VITAMINS
     Route: 048
     Dates: start: 2017
  5. MAGNESIUM [Concomitant]
     Active Substance: MAGNESIUM
     Route: 048
     Dates: start: 2018
  6. LEVOXYL [Concomitant]
     Active Substance: LEVOTHYROXINE SODIUM
     Indication: Hypothyroidism
     Route: 048
     Dates: start: 2009
  7. CELEBREX [Concomitant]
     Active Substance: CELECOXIB
     Indication: Rib fracture
     Route: 048
     Dates: start: 20200505
  8. TYLENOL [Concomitant]
     Active Substance: ACETAMINOPHEN
     Indication: Rib fracture
     Route: 048
     Dates: start: 20200505

REACTIONS (1)
  - Pulmonary mass [Not Recovered/Not Resolved]

NARRATIVE: CASE EVENT DATE: 20230601
